FAERS Safety Report 17166088 (Version 1)
Quarter: 2019Q4

REPORT INFORMATION
  Report Type: Spontaneous
  Country: US (occurrence: US)
  Receive Date: 20191217
  Receipt Date: 20191217
  Transmission Date: 20200122
  Serious: Yes (Hospitalization, Other)
  Sender: FDA-Public Use
  Company Number: US-SA-2019SA347190

PATIENT
  Age: 82 Year
  Sex: Male
  Weight: 92.52 kg

DRUGS (25)
  1. DULOXETINE. [Concomitant]
     Active Substance: DULOXETINE
     Dosage: UNK
  2. VITAMIN B12 [Concomitant]
     Active Substance: CYANOCOBALAMIN
     Dosage: UNK UNK, QD
  3. PLAVIX [Suspect]
     Active Substance: CLOPIDOGREL BISULFATE
     Indication: ANTICOAGULANT THERAPY
     Dosage: 75 MG, QD (EVERY MORNING BEFORE BREAKFAST)
     Route: 048
  4. ALFALFA [MEDICAGO SATIVA] [Concomitant]
     Dosage: 8 TIMES PER DAY
  5. VITAMIN D3 [Concomitant]
     Active Substance: CHOLECALCIFEROL
     Dosage: UNK UNK, QD
  6. FISH OIL [Concomitant]
     Active Substance: FISH OIL
     Dosage: 3 SOFTGELS DAILY
  7. CARBIDOPA AND LEVODOPA [Concomitant]
     Active Substance: CARBIDOPA\LEVODOPA
     Dosage: 2 DF, QD
     Route: 048
  8. LOSARTAN. [Concomitant]
     Active Substance: LOSARTAN
     Dosage: UNK
  9. YOHIMBINE HYDROCHLORIDE [Suspect]
     Active Substance: YOHIMBINE HYDROCHLORIDE
     Indication: NUTRITIONAL SUPPLEMENTATION
     Dosage: TWO CAPSULES ONCE DAILY
     Route: 048
     Dates: start: 2009, end: 20191029
  10. DILTIAZEM. [Concomitant]
     Active Substance: DILTIAZEM
     Dosage: UNK
  11. GINKGO BILOBA [Concomitant]
     Active Substance: GINKGO
     Dosage: UNK UNK, QD
  12. MAGNESIUM [Concomitant]
     Active Substance: MAGNESIUM
     Dosage: UNK UNK, QD
  13. SODIUM CHLORIDE. [Concomitant]
     Active Substance: SODIUM CHLORIDE
     Dosage: UNK
  14. VITAMINS NOS [Concomitant]
     Active Substance: VITAMINS
     Dosage: UNK UNK, QD
  15. COMPLETE B [Concomitant]
     Dosage: 2 DF, QD
  16. CAPSICUM [Suspect]
     Active Substance: CAPSICUM
     Indication: NUTRITIONAL SUPPLEMENTATION
     Dosage: 1 DF, QD ONE CAPSULE ONCE DAILY
     Route: 048
     Dates: start: 2009, end: 20191106
  17. ALLIUM SATIVUM (ODORLESS GARLIC EXTRACT) [Suspect]
     Active Substance: DIETARY SUPPLEMENT
     Indication: NUTRITIONAL SUPPLEMENTATION
     Dosage: ONE SOFTGEL ONCE DAILY
     Route: 048
     Dates: start: 2009, end: 20191029
  18. GABAPENTIN. [Concomitant]
     Active Substance: GABAPENTIN
     Dosage: UNK
  19. PRAVASTATIN. [Concomitant]
     Active Substance: PRAVASTATIN
     Dosage: UNK
  20. CAMELLIA SINENSIS [Suspect]
     Active Substance: TEA LEAF
     Indication: NUTRITIONAL SUPPLEMENTATION
     Dosage: TWO CAPSULES TWICE DAILY
     Route: 048
     Dates: start: 2009, end: 20191029
  21. MUIRA PUAMA [DIETARY SUPPLEMENTS\HERBALS] [Suspect]
     Active Substance: DIETARY SUPPLEMENT\HERBALS
     Indication: NUTRITIONAL SUPPLEMENTATION
     Dosage: ONE CAPLET ONCE DAILY
     Route: 048
     Dates: start: 2009, end: 20191106
  22. CINNAMON [CINNAMOMUM CASSIA] [Concomitant]
     Dosage: 2 DF, QD
  23. GLUCOSAMINE CHONDROITIN [CHONDROITIN SULFATE SODIUM;GLUCOSAMINE HYDROC [Concomitant]
     Dosage: 2 DF, QD
  24. ALOE VERA [Suspect]
     Active Substance: ALOE VERA LEAF
     Indication: NUTRITIONAL SUPPLEMENTATION
     Dosage: ONE SOFTGEL TWICE DAILY
     Route: 048
     Dates: start: 2009, end: 20191106
  25. APPLE CIDER VINEGAR [Concomitant]
     Active Substance: APPLE CIDER VINEGAR
     Dosage: UNK UNK, QD

REACTIONS (2)
  - Gastrointestinal haemorrhage [Unknown]
  - Faeces discoloured [Unknown]

NARRATIVE: CASE EVENT DATE: 20191029
